FAERS Safety Report 7355596-7 (Version None)
Quarter: 2011Q1

REPORT INFORMATION
  Report Type: 
  Country: None (occurrence: None)
  Receive Date: 20110316
  Receipt Date: 20110310
  Transmission Date: 20110831
  Serious: Yes (Hospitalization)
  Sender: FDA-Public Use
  Company Number: B0705404A

PATIENT
  Sex: Male
  Weight: 6.6 kg

DRUGS (3)
  1. AUGMENTIN '125' [Suspect]
     Indication: PRODUCT USED FOR UNKNOWN INDICATION
     Route: 063
     Dates: start: 20110121, end: 20110126
  2. AUGMENTIN [Suspect]
     Indication: LYMPHADENOPATHY
     Route: 048
     Dates: start: 20110211, end: 20110212
  3. BACTRIM [Suspect]
     Indication: PROPHYLAXIS URINARY TRACT INFECTION
     Dosage: 20MG PER DAY
     Route: 048
     Dates: start: 20101201, end: 20110115

REACTIONS (9)
  - LYMPHADENOPATHY [None]
  - C-REACTIVE PROTEIN INCREASED [None]
  - NEUTROPENIA [None]
  - PLATELET COUNT INCREASED [None]
  - DRUG EXPOSURE VIA BREAST MILK [None]
  - PYREXIA [None]
  - THYMUS ENLARGEMENT [None]
  - BLOOD LACTATE DEHYDROGENASE INCREASED [None]
  - WHITE BLOOD CELLS URINE POSITIVE [None]
